FAERS Safety Report 5757895-9 (Version None)
Quarter: 2008Q2

REPORT INFORMATION
  Report Type: 
  Country: None (occurrence: None)
  Receive Date: 20080602
  Receipt Date: 20080602
  Transmission Date: 20081010
  Serious: No
  Sender: FDA-Public Use
  Company Number: None

PATIENT
  Sex: Male
  Weight: 124.7392 kg

DRUGS (1)
  1. ZOLPIDEM TARTRATE [Suspect]
     Indication: SLEEP DISORDER
     Dosage: 1 TABLET BEDTIME
     Dates: start: 20080401

REACTIONS (2)
  - INITIAL INSOMNIA [None]
  - PHARMACEUTICAL PRODUCT COMPLAINT [None]
